FAERS Safety Report 16919811 (Version 2)
Quarter: 2019Q4

REPORT INFORMATION
  Report Type: Spontaneous
  Country: US (occurrence: US)
  Receive Date: 20191015
  Receipt Date: 20191104
  Transmission Date: 20200122
  Serious: No
  Sender: FDA-Public Use
  Company Number: US-B.I. PHARMACEUTICALS,INC./RIDGEFIELD-2019-US-107335

PATIENT
  Sex: Male

DRUGS (2)
  1. JARDIANCE [Suspect]
     Active Substance: EMPAGLIFLOZIN
     Indication: PRODUCT USED FOR UNKNOWN INDICATION
     Route: 065
     Dates: start: 2019, end: 2019
  2. JARDIANCE [Suspect]
     Active Substance: EMPAGLIFLOZIN
     Dosage: BY BREAKING THE PILL IN HALF
     Route: 065
     Dates: start: 20191024

REACTIONS (4)
  - Pollakiuria [Unknown]
  - Fungal infection [Recovered/Resolved]
  - Dry mouth [Unknown]
  - Dysuria [Unknown]

NARRATIVE: CASE EVENT DATE: 2019
